FAERS Safety Report 8698934 (Version 2)
Quarter: 2012Q4

REPORT INFORMATION
  Report Type: 
  Country: BE (occurrence: BE)
  Receive Date: 20120802
  Receipt Date: 20120905
  Transmission Date: 20130627
  Serious: Yes (Hospitalization)
  Sender: FDA-Public Use
  Company Number: BE-ELI_LILLY_AND_COMPANY-BE201207006286

PATIENT
  Sex: Male
  Weight: 70 kg

DRUGS (2)
  1. ZYPADHERA [Suspect]
     Indication: SCHIZOPHRENIA
     Dosage: 405 mg, UNK
     Route: 030
     Dates: start: 20120611
  2. ZYPREXA [Suspect]
     Indication: SCHIZOPHRENIA
     Dosage: 10mg, daily
     Route: 048
     Dates: end: 20120612

REACTIONS (3)
  - Psychotic disorder [Not Recovered/Not Resolved]
  - Suicidal ideation [Not Recovered/Not Resolved]
  - Drug ineffective [Not Recovered/Not Resolved]
